FAERS Safety Report 8012326-3 (Version None)
Quarter: 2011Q4

REPORT INFORMATION
  Report Type: 
  Country: None (occurrence: None)
  Receive Date: 20111228
  Receipt Date: 20111220
  Transmission Date: 20120403
  Serious: Yes (Death, Hospitalization, Other)
  Sender: FDA-Public Use
  Company Number: JP-ROCHE-1012102

PATIENT
  Sex: Male
  Weight: 64 kg

DRUGS (8)
  1. ALOXI [Concomitant]
     Indication: PROPHYLAXIS OF NAUSEA AND VOMITING
     Route: 041
     Dates: start: 20110214, end: 20110922
  2. XELODA [Suspect]
     Indication: COLON CANCER METASTATIC
     Dosage: DOSAGE IS UNCERTAIN.
     Route: 048
     Dates: start: 20110214, end: 20110922
  3. DECADRON [Concomitant]
     Indication: PROPHYLAXIS OF NAUSEA AND VOMITING
     Route: 048
     Dates: start: 20110214, end: 20110101
  4. MAGMITT [Concomitant]
     Indication: PROPHYLAXIS OF NAUSEA AND VOMITING
     Route: 048
     Dates: start: 20110214, end: 20110101
  5. OXALIPLATIN [Suspect]
     Indication: COLON CANCER METASTATIC
     Dosage: DOSAGE IS UNCERTAIN.
     Route: 041
     Dates: start: 20110214, end: 20110922
  6. GASMOTIN [Concomitant]
     Indication: PROPHYLAXIS OF NAUSEA AND VOMITING
     Route: 048
     Dates: start: 20110214, end: 20110101
  7. AVASTIN [Suspect]
     Indication: COLON CANCER METASTATIC
     Dosage: DOSAGE IS UNCERTAIN.
     Route: 041
     Dates: start: 20110309, end: 20110922
  8. DEXAMETHASONE SODIUM PHOSPHATE [Concomitant]
     Indication: PROPHYLAXIS OF NAUSEA AND VOMITING
     Route: 041
     Dates: start: 20110214, end: 20110922

REACTIONS (2)
  - HEPATIC FAILURE [None]
  - BILE DUCT STENOSIS [None]
